FAERS Safety Report 19847474 (Version 4)
Quarter: 2022Q1

REPORT INFORMATION
  Report Type: Spontaneous
  Country: US (occurrence: US)
  Receive Date: 20210917
  Receipt Date: 20220216
  Transmission Date: 20220424
  Serious: Yes (Other)
  Sender: FDA-Public Use
  Company Number: US-PFIZER INC-2021907683

PATIENT
  Age: 83 Year
  Sex: Female

DRUGS (1)
  1. XELJANZ XR [Suspect]
     Active Substance: TOFACITINIB CITRATE
     Indication: Rheumatoid arthritis
     Dosage: 11 MG, 1X/DAY
     Route: 048
     Dates: start: 202104, end: 202201

REACTIONS (8)
  - Skin cancer [Unknown]
  - Therapeutic product effect incomplete [Unknown]
  - Nervous system disorder [Unknown]
  - Eye disorder [Unknown]
  - Visual impairment [Unknown]
  - Blood pressure inadequately controlled [Not Recovered/Not Resolved]
  - Product dose omission in error [Unknown]
  - Blood cholesterol increased [Unknown]

NARRATIVE: CASE EVENT DATE: 20210101
